FAERS Safety Report 6503041-3 (Version None)
Quarter: 2009Q4

REPORT INFORMATION
  Report Type: 
  Country: None (occurrence: None)
  Receive Date: 20091217
  Receipt Date: 20091208
  Transmission Date: 20100525
  Serious: Yes (Hospitalization)
  Sender: FDA-Public Use
  Company Number: JP-ROCHE-669684

PATIENT
  Sex: Male
  Weight: 48 kg

DRUGS (1)
  1. TAMIFLU [Suspect]
     Indication: INFLUENZA
     Route: 048
     Dates: start: 20091106, end: 20091106

REACTIONS (2)
  - DRUG INEFFECTIVE [None]
  - PNEUMONIA INFLUENZAL [None]
